FAERS Safety Report 20826337 (Version 1)
Quarter: 2022Q2

REPORT INFORMATION
  Report Type: Spontaneous
  Country: US (occurrence: None)
  Receive Date: 20220512
  Receipt Date: 20220512
  Transmission Date: 20220721
  Serious: Yes (Hospitalization)
  Sender: FDA-Public Use
  Company Number: None

PATIENT
  Age: 74 Year
  Sex: Male

DRUGS (1)
  1. RYDAPT [Suspect]
     Active Substance: MIDOSTAURIN
     Dosage: FREQUENCY : TWICE A DAY;?
     Route: 048
     Dates: start: 20220317

REACTIONS (9)
  - Hypophagia [None]
  - Confusional state [None]
  - Fall [None]
  - Head injury [None]
  - Limb injury [None]
  - Skin laceration [None]
  - Contusion [None]
  - Blood creatinine increased [None]
  - Ventricular hypertrophy [None]

NARRATIVE: CASE EVENT DATE: 20220502
